FAERS Safety Report 5522873-1 (Version None)
Quarter: 2007Q4

REPORT INFORMATION
  Report Type: 
  Country: None (occurrence: None)
  Receive Date: 20071116
  Receipt Date: 20071102
  Transmission Date: 20080405
  Serious: Yes (Hospitalization)
  Sender: FDA-Public Use
  Company Number: 020448

PATIENT
  Age: 84 Year
  Sex: Female

DRUGS (8)
  1. ANAGRELIDE HCI(ANAGRELIDE HYDROCHLORIDE) CAPSULE, 1.0MG [Suspect]
     Indication: THROMBOCYTHAEMIA
     Dosage: 3 MG, QD, ORAL
     Route: 048
     Dates: start: 20071009, end: 20071001
  2. ASPIRIN [Concomitant]
  3. CALCIUM (CALCIUM) [Concomitant]
  4. DILTIAZEM [Concomitant]
  5. JANUMET [Concomitant]
  6. LEVOTHYROXINE SODIUM [Concomitant]
  7. PAXIL [Concomitant]
  8. PLAVIX [Concomitant]

REACTIONS (2)
  - PLATELET COUNT INCREASED [None]
  - TRANSIENT ISCHAEMIC ATTACK [None]
